FAERS Safety Report 9748263 (Version 3)
Quarter: 2014Q1

REPORT INFORMATION
  Report Type: Spontaneous
  Country: DE (occurrence: DE)
  Receive Date: 20131212
  Receipt Date: 20140210
  Transmission Date: 20141002
  Serious: Yes (Hospitalization, Other)
  Sender: FDA-Public Use
  Company Number: DE-JNJFOC-20131206258

PATIENT
  Age: 73 Year
  Sex: Female
  Weight: 75 kg

DRUGS (4)
  1. XARELTO [Suspect]
     Indication: CEREBROVASCULAR ACCIDENT PROPHYLAXIS
     Route: 048
     Dates: start: 201309, end: 20131107
  2. XARELTO [Suspect]
     Indication: ATRIAL FIBRILLATION
     Route: 048
     Dates: start: 201309, end: 20131107
  3. BISOPROLOL [Concomitant]
     Dosage: 0.250 (UNPECIFIED UNITS)
     Route: 065
  4. LANICOR [Concomitant]
     Dosage: 0.250 (UNSPECIFIED UNITS)
     Route: 065

REACTIONS (2)
  - Ischaemic stroke [Recovering/Resolving]
  - Nasal sinus cancer [Unknown]
